FAERS Safety Report 12390015 (Version 4)
Quarter: 2016Q2

REPORT INFORMATION
  Report Type: Spontaneous
  Country: US (occurrence: US)
  Receive Date: 20160520
  Receipt Date: 20160630
  Transmission Date: 20160815
  Serious: Yes (Hospitalization, Other)
  Sender: FDA-Public Use
  Company Number: US-BAYER-2016-096278

PATIENT
  Age: 34 Year
  Sex: Female

DRUGS (1)
  1. MIRENA [Suspect]
     Active Substance: LEVONORGESTREL
     Indication: CONTRACEPTION
     Dosage: 20 MCG/24HR, CONT
     Route: 015
     Dates: start: 20151221, end: 20160324

REACTIONS (4)
  - Peritoneal haemorrhage [Recovering/Resolving]
  - Drug ineffective [None]
  - Ruptured ectopic pregnancy [Recovering/Resolving]
  - Procedural haemorrhage [Recovering/Resolving]
